FAERS Safety Report 14746785 (Version 1)
Quarter: 2018Q2

REPORT INFORMATION
  Report Type: Spontaneous
  Country: DE (occurrence: DE)
  Receive Date: 20180411
  Receipt Date: 20180411
  Transmission Date: 20180711
  Serious: Yes (Other)
  Sender: FDA-Public Use
  Company Number: DE-ROCHE-2100631

PATIENT
  Age: 77 Year
  Sex: Female

DRUGS (10)
  1. DIAZEPAM. [Suspect]
     Active Substance: DIAZEPAM
     Indication: SLEEP DISORDER
     Route: 048
  2. FLECAINIDE [Concomitant]
     Active Substance: FLECAINIDE
     Route: 065
  3. NIFEDIPIN [Concomitant]
     Active Substance: NIFEDIPINE
     Route: 065
  4. NITRO (GERMANY) [Concomitant]
     Dosage: 2 PUFFS
     Route: 065
  5. MARCUMAR [Interacting]
     Active Substance: PHENPROCOUMON
     Indication: PRODUCT USED FOR UNKNOWN INDICATION
     Route: 048
     Dates: start: 2008
  6. TORASEMID [Concomitant]
     Active Substance: TORSEMIDE
     Route: 065
  7. ISOPTIN [Concomitant]
     Active Substance: VERAPAMIL HYDROCHLORIDE
     Route: 065
  8. CANDESARTAN. [Concomitant]
     Active Substance: CANDESARTAN
     Route: 065
  9. RAMIPRIL. [Concomitant]
     Active Substance: RAMIPRIL
     Route: 065
  10. HOGGAR NIGHT [Concomitant]
     Route: 065

REACTIONS (4)
  - Product use issue [Unknown]
  - Low density lipoprotein increased [Unknown]
  - Drug interaction [Unknown]
  - International normalised ratio increased [Unknown]

NARRATIVE: CASE EVENT DATE: 20180307
